FAERS Safety Report 12201694 (Version 1)
Quarter: 2016Q1

REPORT INFORMATION
  Report Type: Spontaneous
  Country: US (occurrence: US)
  Receive Date: 20160322
  Receipt Date: 20160322
  Transmission Date: 20160526
  Serious: No
  Sender: FDA-Public Use
  Company Number: US-SA-2015SA214220

PATIENT
  Age: 81 Year
  Sex: Female

DRUGS (1)
  1. TRIAMCINOLONE ACETONIDE. [Suspect]
     Active Substance: TRIAMCINOLONE ACETONIDE
     Indication: HYPERTENSION
     Dosage: PRODUCT START DATE: 3-4 DAYS
     Route: 065

REACTIONS (5)
  - Hyperhidrosis [Unknown]
  - Product use issue [Unknown]
  - Headache [Unknown]
  - Discomfort [Unknown]
  - Dry throat [Unknown]
